FAERS Safety Report 13571856 (Version 1)
Quarter: 2017Q2

REPORT INFORMATION
  Report Type: Spontaneous
  Country: US (occurrence: US)
  Receive Date: 20170522
  Receipt Date: 20170522
  Transmission Date: 20170830
  Serious: Yes (Hospitalization)
  Sender: FDA-Public Use
  Company Number: None

PATIENT
  Age: 88 Year
  Sex: Male
  Weight: 123.2 kg

DRUGS (1)
  1. DABIGATRAN [Suspect]
     Active Substance: DABIGATRAN
     Indication: ATRIAL FIBRILLATION
     Route: 048
     Dates: start: 20160810, end: 20170203

REACTIONS (11)
  - Myelodysplastic syndrome [None]
  - Condition aggravated [None]
  - Gastric haemorrhage [None]
  - Haematuria [None]
  - Gastrointestinal haemorrhage [None]
  - Chronic obstructive pulmonary disease [None]
  - Cardiac failure congestive [None]
  - Hypertension [None]
  - Dementia [None]
  - Diarrhoea [None]
  - Hernia [None]

NARRATIVE: CASE EVENT DATE: 20170203
